FAERS Safety Report 17867583 (Version 1)
Quarter: 2020Q2

REPORT INFORMATION
  Report Type: Spontaneous
  Country: US (occurrence: US)
  Receive Date: 20200605
  Receipt Date: 20200605
  Transmission Date: 20200714
  Serious: No
  Sender: FDA-Public Use
  Company Number: US-AKRON, INC.-2085512

PATIENT
  Age: 44 Year
  Sex: Female

DRUGS (1)
  1. VANCOMYCIN HCL CAPSULES USP [Suspect]
     Active Substance: VANCOMYCIN HYDROCHLORIDE
     Route: 048

REACTIONS (1)
  - Red man syndrome [Unknown]
